FAERS Safety Report 7415042-1 (Version None)
Quarter: 2011Q2

REPORT INFORMATION
  Report Type: 
  Country: None (occurrence: None)
  Receive Date: 20110414
  Receipt Date: 20110404
  Transmission Date: 20111010
  Serious: Yes (Hospitalization)
  Sender: FDA-Public Use
  Company Number: US-ROCHE-764704

PATIENT
  Age: 40 Year
  Sex: Male
  Weight: 110 kg

DRUGS (12)
  1. NEORAL [Suspect]
     Indication: IMMUNOSUPPRESSION
     Route: 048
     Dates: start: 20090520, end: 20090526
  2. MAGNESIUM OXIDE [Concomitant]
     Dates: start: 20090527
  3. NEORAL [Suspect]
     Route: 048
     Dates: start: 20090527, end: 20091222
  4. PREDNISONE [Suspect]
     Route: 048
     Dates: start: 20081114
  5. NEORAL [Suspect]
     Route: 048
     Dates: start: 20100217, end: 20101109
  6. LABETALOL [Concomitant]
     Dates: start: 20090616
  7. ASPIRIN [Concomitant]
  8. ESOMEPRAZOLE [Concomitant]
     Dates: start: 20081114
  9. ENALAPRIL MALEATE [Concomitant]
     Dates: start: 20081117
  10. SODIUM BICARBONATE [Concomitant]
     Dates: start: 20091216
  11. CELLCEPT [Suspect]
     Route: 048
     Dates: start: 20080513
  12. NEORAL [Suspect]
     Route: 048
     Dates: start: 20091223, end: 20100216

REACTIONS (2)
  - RESPIRATORY DISTRESS [None]
  - H1N1 INFLUENZA [None]
